FAERS Safety Report 8001661-0 (Version None)
Quarter: 2011Q4

REPORT INFORMATION
  Report Type: 
  Country: None (occurrence: None)
  Receive Date: 20111222
  Receipt Date: 20111214
  Transmission Date: 20120403
  Serious: Yes (Hospitalization)
  Sender: FDA-Public Use
  Company Number: JP-BAYER-2011-104685

PATIENT
  Age: 71 Year
  Sex: Male
  Weight: 64 kg

DRUGS (10)
  1. CALFINA AMEL [Concomitant]
     Indication: OSTEOPOROSIS
     Dosage: DAILY DOSE 0.5 ?G
     Route: 048
     Dates: start: 20100827, end: 20111019
  2. LOXOPROFEN SODIUM [Concomitant]
     Indication: CANCER PAIN
     Dosage: 60 MG, PRN
     Route: 048
     Dates: start: 20110927, end: 20111019
  3. URSAMIC [Concomitant]
     Indication: HEPATITIS
     Dosage: DAILY DOSE 300 MG
     Route: 048
     Dates: start: 20100827, end: 20111019
  4. NEXAVAR [Suspect]
     Indication: HEPATIC NEOPLASM MALIGNANT
     Dosage: 400 MG, BID
     Route: 048
     Dates: start: 20111013, end: 20111019
  5. ALINAMIN F [FURSULTIAMINE] [Concomitant]
     Indication: VITAMIN B COMPLEX DEFICIENCY
     Dosage: DAILY DOSE 75 MG
     Route: 048
     Dates: start: 20100827, end: 20111019
  6. OMEPRAZOLE [Concomitant]
     Indication: GASTRIC ULCER
     Dosage: DAILY DOSE 20 MG
     Route: 048
     Dates: start: 20100827, end: 20111019
  7. NEXAVAR [Suspect]
     Dosage: DAILY DOSE 400 MG
     Route: 048
     Dates: start: 20111103, end: 20111124
  8. REBAMIPIDE [Concomitant]
     Indication: CANCER PAIN
     Dosage: 100 MG, PRN
     Route: 048
     Dates: start: 20110927, end: 20111019
  9. SHAKUYAKUKANZOUTOU [Concomitant]
     Indication: MUSCLE SPASMS
     Dosage: DAILY DOSE 5 G
     Route: 048
     Dates: start: 20101008, end: 20111019
  10. GASMOTIN [Concomitant]
     Indication: GASTRITIS
     Dosage: DAILY DOSE 15 MG
     Route: 048
     Dates: start: 20100827, end: 20111019

REACTIONS (2)
  - LOWER GASTROINTESTINAL HAEMORRHAGE [None]
  - HEPATIC FUNCTION ABNORMAL [None]
